FAERS Safety Report 7554397-4 (Version None)
Quarter: 2011Q2

REPORT INFORMATION
  Report Type: 
  Country: None (occurrence: None)
  Receive Date: 20110617
  Receipt Date: 20110607
  Transmission Date: 20111010
  Serious: Yes (Death)
  Sender: FDA-Public Use
  Company Number: US-ROCHE-763688

PATIENT
  Sex: Male
  Weight: 172.7 kg

DRUGS (7)
  1. BEVACIZUMAB [Suspect]
     Indication: HEAD AND NECK CANCER
     Dosage: CYCLE OF 21 DAYS; FREQ: DAY 1 OVER 30-90 MINUTES;LAST DOSE ON 26 JAN 2011
     Route: 042
     Dates: start: 20101216
  2. SPIRIVA [Concomitant]
  3. VICODIN [Concomitant]
  4. CIPROFLOXACIN HCL [Concomitant]
  5. DOCETAXEL [Suspect]
     Indication: HEAD AND NECK CANCER
     Dosage: CYCLE OF 21 DAYS; FREQ:ON DAY 1 OVER 1 HOUR; LAST DOS EON 26 JAN 2011
     Route: 042
     Dates: start: 20101216
  6. DETROL [Concomitant]
  7. CISPLATIN [Suspect]
     Indication: HEAD AND NECK CANCER
     Dosage: CYCLE OF 21 DAYS; FREQ:ON DAY1 OVER 1-2 HOURS
     Route: 042
     Dates: start: 20101216

REACTIONS (1)
  - DEATH [None]
